FAERS Safety Report 23282294 (Version 3)
Quarter: 2023Q4

REPORT INFORMATION
  Report Type: Spontaneous
  Country: US (occurrence: US)
  Receive Date: 20231211
  Receipt Date: 20231220
  Transmission Date: 20240109
  Serious: No
  Sender: FDA-Public Use
  Company Number: US-SANOFI-01865636

PATIENT
  Age: 62 Year
  Sex: Female

DRUGS (1)
  1. TOUJEO [Suspect]
     Active Substance: INSULIN GLARGINE
     Indication: Type 2 diabetes mellitus
     Dosage: 55 U, QD (DRUG TREATMENT DURATION:MAYBE 5 YEARS)

REACTIONS (3)
  - Blood glucose increased [Unknown]
  - Intentional product use issue [Unknown]
  - Device mechanical issue [Unknown]
